FAERS Safety Report 5700645-2 (Version None)
Quarter: 2008Q2

REPORT INFORMATION
  Report Type: 
  Country: None (occurrence: None)
  Receive Date: 20080407
  Receipt Date: 20080327
  Transmission Date: 20081010
  Serious: Yes (Death, Hospitalization, Other)
  Sender: FDA-Public Use
  Company Number: 2008-01043

PATIENT

DRUGS (3)
  1. VELCADE [Suspect]
     Indication: ACUTE MYELOID LEUKAEMIA
     Dosage: INTRAVENOUS
     Route: 042
  2. IDARUBICIN(IDARUBICIN) CAPSULE, 5.0MG [Suspect]
     Indication: ACUTE MYELOID LEUKAEMIA
     Dosage: 12 MG/M2, INTRAVENOUS
     Route: 042
  3. CYTARABINE [Suspect]
     Indication: ACUTE MYELOID LEUKAEMIA
     Dosage: 100 MG/M2, INTRAVENOUS
     Route: 042

REACTIONS (8)
  - FEBRILE NEUTROPENIA [None]
  - GRAFT VERSUS HOST DISEASE [None]
  - HYPERBILIRUBINAEMIA [None]
  - PLEURAL EFFUSION [None]
  - SEPSIS [None]
  - SINUS TACHYCARDIA [None]
  - THROMBOCYTOPENIA [None]
  - TROPONIN INCREASED [None]
